FAERS Safety Report 10068941 (Version 1)
Quarter: 2014Q2

REPORT INFORMATION
  Report Type: Spontaneous
  Country: FR (occurrence: FR)
  Receive Date: 20140409
  Receipt Date: 20140409
  Transmission Date: 20141212
  Serious: Yes (Death, Other)
  Sender: FDA-Public Use
  Company Number: PHHY2014FR042860

PATIENT
  Age: 22 Year
  Sex: Male

DRUGS (3)
  1. CICLOSPORIN [Suspect]
     Indication: IMMUNOSUPPRESSION
  2. AZATHIOPRINE [Suspect]
     Indication: IMMUNOSUPPRESSION
  3. CORTICOSTEROIDS [Suspect]
     Indication: IMMUNOSUPPRESSION

REACTIONS (4)
  - Death [Fatal]
  - Granulomatosis with polyangiitis [Unknown]
  - Heart transplant rejection [Unknown]
  - Cytomegalovirus infection [Unknown]
